FAERS Safety Report 13203741 (Version 2)
Quarter: 2017Q1

REPORT INFORMATION
  Report Type: Report from Study
  Country: None (occurrence: US)
  Receive Date: 20170209
  Receipt Date: 20170210
  Transmission Date: 20170428
  Serious: No
  Sender: FDA-Public Use
  Company Number: US-ABBVIE-16K-163-1816866-00

PATIENT
  Sex: Male

DRUGS (3)
  1. HUMIRA [Suspect]
     Active Substance: ADALIMUMAB
     Dosage: DAY 29
     Route: 058
     Dates: start: 201611
  2. HUMIRA [Suspect]
     Active Substance: ADALIMUMAB
     Dosage: DAY 15
     Route: 058
     Dates: start: 201611, end: 201611
  3. HUMIRA [Suspect]
     Active Substance: ADALIMUMAB
     Indication: CROHN^S DISEASE
     Dosage: DAY 0
     Route: 058
     Dates: start: 201611, end: 201611

REACTIONS (14)
  - Insomnia [Not Recovered/Not Resolved]
  - Weight decreased [Recovering/Resolving]
  - Anxiety [Unknown]
  - Haematochezia [Unknown]
  - Pyrexia [Not Recovered/Not Resolved]
  - Depressed mood [Unknown]
  - Rectal haemorrhage [Recovering/Resolving]
  - Night sweats [Recovered/Resolved]
  - Injection site haematoma [Unknown]
  - Diarrhoea [Recovering/Resolving]
  - Activities of daily living impaired [Recovering/Resolving]
  - Cold sweat [Recovered/Resolved]
  - Decreased appetite [Unknown]
  - Abdominal pain upper [Recovering/Resolving]

NARRATIVE: CASE EVENT DATE: 2016
